FAERS Safety Report 6223430-4 (Version None)
Quarter: 2009Q2

REPORT INFORMATION
  Report Type: 
  Country: None (occurrence: None)
  Receive Date: 20090611
  Receipt Date: 20090528
  Transmission Date: 20091009
  Serious: Yes (Hospitalization)
  Sender: FDA-Public Use
  Company Number: JP-PFIZER INC-2009168672

PATIENT
  Age: 72 Year

DRUGS (2)
  1. MIGLITOL [Suspect]
     Route: 048
  2. INSULIN [Concomitant]
     Route: 058

REACTIONS (1)
  - DERMATITIS EXFOLIATIVE [None]
